FAERS Safety Report 6938381-7 (Version None)
Quarter: 2010Q3

REPORT INFORMATION
  Report Type: 
  Country: None (occurrence: None)
  Receive Date: 20100824
  Receipt Date: 20100812
  Transmission Date: 20110219
  Serious: Yes (Death, Other)
  Sender: FDA-Public Use
  Company Number: US-PFIZER INC-2010042303

PATIENT
  Sex: Female
  Weight: 145.3 kg

DRUGS (5)
  1. SUTENT [Suspect]
     Indication: RENAL CELL CARCINOMA
     Dosage: 50 MG, 1X/DAY FOR 28 DAYS EVERY 42 DAYS
     Route: 048
     Dates: start: 20091208
  2. CALTRATE [Concomitant]
     Dosage: 600 MG, 1X/DAY
     Route: 048
     Dates: start: 20090930
  3. CUMADIN [Concomitant]
     Dosage: 7.5 MG, 1X/DAY
     Route: 048
     Dates: start: 20090601
  4. GLYBURIDE [Concomitant]
     Dosage: 2.5 MG, 1X/DAY
     Route: 048
     Dates: start: 20090930
  5. NOVOLIN 70/30 [Concomitant]
     Dosage: SLIDING SCALE
     Route: 058
     Dates: start: 20090601

REACTIONS (6)
  - DEATH [None]
  - DIARRHOEA [None]
  - DYSGEUSIA [None]
  - DYSPEPSIA [None]
  - HYPERTENSION [None]
  - SKIN DISCOLOURATION [None]
